FAERS Safety Report 15386678 (Version 1)
Quarter: 2018Q3

REPORT INFORMATION
  Report Type: Spontaneous
  Country: US (occurrence: US)
  Receive Date: 20180914
  Receipt Date: 20180914
  Transmission Date: 20181010
  Serious: Yes (Hospitalization, Other)
  Sender: FDA-Public Use
  Company Number: US-OTSUKA-2018_021935

PATIENT
  Sex: Female

DRUGS (6)
  1. ABILIFY MAINTENA [Suspect]
     Active Substance: ARIPIPRAZOLE
     Dosage: 300 MG, UNK
     Route: 065
  2. ABILIFY MAINTENA [Suspect]
     Active Substance: ARIPIPRAZOLE
     Indication: PRODUCT USED FOR UNKNOWN INDICATION
     Dosage: 400 MG, UNK
     Route: 065
  3. ABILIFY [Suspect]
     Active Substance: ARIPIPRAZOLE
     Indication: MAJOR DEPRESSION
     Dosage: 10 MG, QD
     Route: 065
  4. ABILIFY [Suspect]
     Active Substance: ARIPIPRAZOLE
     Indication: BIPOLAR DISORDER
     Dosage: 5 MG, QD
     Route: 065
     Dates: start: 201005
  5. ABILIFY [Suspect]
     Active Substance: ARIPIPRAZOLE
     Indication: ANXIETY
     Dosage: 15 MG, QD
     Route: 065
     Dates: end: 201807
  6. ABILIFY [Suspect]
     Active Substance: ARIPIPRAZOLE
     Indication: SUBSTANCE ABUSE

REACTIONS (18)
  - Compulsive sexual behaviour [Unknown]
  - Dermatillomania [Unknown]
  - Emotional distress [Unknown]
  - Mental disorder [Unknown]
  - Suicide attempt [Unknown]
  - Prescribed underdose [Unknown]
  - Eating disorder [Unknown]
  - Pain [Unknown]
  - Gambling disorder [Unknown]
  - Economic problem [Unknown]
  - Anhedonia [Unknown]
  - Injury [Unknown]
  - Obsessive-compulsive disorder [Unknown]
  - Loss of employment [Unknown]
  - Suicidal ideation [Unknown]
  - Trichotillomania [Unknown]
  - Anxiety [Unknown]
  - Product use in unapproved indication [Unknown]
